FAERS Safety Report 7434750-X (Version None)
Quarter: 2011Q2

REPORT INFORMATION
  Report Type: 
  Country: None (occurrence: None)
  Receive Date: 20110425
  Receipt Date: 20110411
  Transmission Date: 20111010
  Serious: Yes (Life-Threatening, Hospitalization)
  Sender: FDA-Public Use
  Company Number: FR-CELGENEUS-056-C5013-10112898

PATIENT
  Sex: Male
  Weight: 60 kg

DRUGS (8)
  1. DOCETAXEL [Suspect]
     Indication: PROSTATE CANCER
     Dosage: 125 MILLIGRAM
     Route: 065
     Dates: start: 20101116
  2. LYRICA [Concomitant]
     Indication: PAIN
     Dosage: 150 MILLIGRAM
     Route: 048
     Dates: start: 20101018
  3. PREDNISONE [Suspect]
     Indication: PROSTATE CANCER
     Dosage: 10 MILLIGRAM
     Route: 065
     Dates: start: 20101116
  4. OXYCONTIN [Concomitant]
     Indication: BONE PAIN
     Dosage: 60 MILLIGRAM
     Route: 048
     Dates: start: 20101116
  5. INIPOMP [Concomitant]
     Indication: PROPHYLAXIS
     Dosage: 40 MILLIGRAM
     Route: 048
     Dates: start: 20101018
  6. CC-5013\PLACEBO [Suspect]
     Indication: PROSTATE CANCER
     Dosage: 25 MILLIGRAM
     Route: 048
     Dates: start: 20101116
  7. OXYNORM [Concomitant]
     Indication: BONE PAIN
     Route: 065
     Dates: start: 20101116
  8. ENANTONE LP [Concomitant]
     Indication: PROSTATE CANCER
     Dosage: .125 MILLIGRAM
     Route: 030
     Dates: start: 20101116

REACTIONS (2)
  - DISSEMINATED INTRAVASCULAR COAGULATION [None]
  - SEPTIC SHOCK [None]
